FAERS Safety Report 8904352 (Version 1)
Quarter: 2012Q4

REPORT INFORMATION
  Report Type: Report from Study
  Country: PL (occurrence: PL)
  Receive Date: 20121112
  Receipt Date: 20121112
  Transmission Date: 20130627
  Serious: Yes (Other)
  Sender: FDA-Public Use
  Company Number: PL-ROCHE-1104645

PATIENT
  Age: 69 Year
  Sex: Female
  Weight: 73.5 kg

DRUGS (4)
  1. VEMURAFENIB [Suspect]
     Indication: MALIGNANT MELANOMA
     Dosage: twice daily
     Route: 048
     Dates: start: 20111212
  2. APO-PENTOX [Concomitant]
     Route: 065
     Dates: start: 2004
  3. HALIDOR [Concomitant]
     Route: 065
     Dates: start: 2002
  4. ACARD [Concomitant]
     Route: 065
     Dates: start: 2002

REACTIONS (1)
  - Melanocytic naevus [Recovered/Resolved]
